FAERS Safety Report 4299568-8 (Version None)
Quarter: 2004Q1

REPORT INFORMATION
  Report Type: 
  Country: None (occurrence: None)
  Receive Date: 20040217
  Receipt Date: 20040217
  Transmission Date: 20041129
  Serious: Yes (Hospitalization)
  Sender: FDA-Public Use
  Company Number: None

PATIENT
  Age: 43 Year
  Sex: Female
  Weight: 60 kg

DRUGS (11)
  1. BUSULFAN [Suspect]
     Indication: ACUTE MYELOID LEUKAEMIA
     Dosage: 0.8 MG/KG IV X 16 DOSES
     Route: 042
     Dates: start: 20040129, end: 20040201
  2. ETOPOSIDE [Suspect]
     Dosage: 60 MG/KG IV ON DAY - 3
     Route: 042
     Dates: start: 20040202
  3. GATIFLOXACIN [Concomitant]
  4. FLUCONAZOLE [Concomitant]
  5. ACYCLOVIR [Concomitant]
  6. ATIVAN [Concomitant]
  7. AMBIEN [Concomitant]
  8. NEUPOGEN [Concomitant]
  9. RITALIN [Concomitant]
  10. PROTONIX [Concomitant]
  11. DILAUDID [Concomitant]

REACTIONS (7)
  - ANOREXIA [None]
  - DYSPHAGIA [None]
  - MUCOSAL INFLAMMATION [None]
  - ODYNOPHAGIA [None]
  - OESOPHAGITIS [None]
  - PAIN [None]
  - STEM CELL TRANSPLANT [None]
